FAERS Safety Report 14452472 (Version 4)
Quarter: 2018Q1

REPORT INFORMATION
  Report Type: Spontaneous
  Country: US (occurrence: US)
  Receive Date: 20180129
  Receipt Date: 20180320
  Transmission Date: 20180509
  Serious: Yes (Other)
  Sender: FDA-Public Use
  Company Number: US-PFIZER INC-2018035474

PATIENT
  Age: 69 Year
  Sex: Female

DRUGS (1)
  1. SUTENT [Suspect]
     Active Substance: SUNITINIB MALATE
     Dosage: UNK

REACTIONS (7)
  - Fatigue [Unknown]
  - Urinary tract infection [Unknown]
  - Neutrophil count decreased [Recovering/Resolving]
  - Thinking abnormal [Unknown]
  - Clostridium difficile infection [Unknown]
  - White blood cell count decreased [Unknown]
  - Upper respiratory tract infection [Unknown]
